FAERS Safety Report 18655408 (Version 1)
Quarter: 2020Q4

REPORT INFORMATION
  Report Type: Spontaneous
  Country: PT (occurrence: PT)
  Receive Date: 20201223
  Receipt Date: 20201223
  Transmission Date: 20210114
  Serious: Yes (Other)
  Sender: FDA-Public Use
  Company Number: PT-GLAXOSMITHKLINE-PT2020249678

PATIENT
  Age: 80 Year
  Sex: Male

DRUGS (1)
  1. COMBODART [Suspect]
     Active Substance: DUTASTERIDE\TAMSULOSIN
     Indication: PRODUCT USED FOR UNKNOWN INDICATION
     Dosage: UNK

REACTIONS (11)
  - Diabetes mellitus [Unknown]
  - Abdominal discomfort [Unknown]
  - Prostatomegaly [Unknown]
  - Ear pruritus [Unknown]
  - Pain [Unknown]
  - Flatulence [Unknown]
  - Food allergy [Unknown]
  - Hypersensitivity [Unknown]
  - Eye allergy [Unknown]
  - Oropharyngeal pain [Unknown]
  - Tongue ulceration [Unknown]
